FAERS Safety Report 9519915 (Version 2)
Quarter: 2014Q1

REPORT INFORMATION
  Report Type: Spontaneous
  Country: US (occurrence: None)
  Receive Date: 20130305
  Receipt Date: 20140306
  Transmission Date: 20141002
  Serious: Yes (Other)
  Sender: FDA-Public Use
  Company Number: 163-21880-12010580

PATIENT
  Age: 82 Year
  Sex: Male
  Weight: 86.18 kg

DRUGS (2)
  1. REVLIMID [Suspect]
     Indication: PLASMA CELL MYELOMA
     Route: 048
     Dates: start: 20111128, end: 20120304
  2. COUMADIN (WARFARIN SODIUM) [Concomitant]

REACTIONS (7)
  - Ageusia [None]
  - Pyrexia [None]
  - Nightmare [None]
  - Chills [None]
  - Fatigue [None]
  - Night sweats [None]
  - Diarrhoea [None]
